FAERS Safety Report 4821036-2 (Version None)
Quarter: 2005Q4

REPORT INFORMATION
  Report Type: 
  Country: None (occurrence: None)
  Receive Date: 20051104
  Receipt Date: 20051019
  Transmission Date: 20060501
  Serious: Yes (Hospitalization)
  Sender: FDA-Public Use
  Company Number: JP-BRISTOL-MYERS SQUIBB COMPANY-13168299

PATIENT
  Age: 47 Year
  Sex: Female

DRUGS (3)
  1. ENDOXAN [Suspect]
     Indication: BREAST CANCER
     Route: 048
     Dates: start: 20050511, end: 20050914
  2. FURTULON [Suspect]
     Indication: BREAST CANCER
     Route: 048
     Dates: start: 20050511, end: 20050914
  3. HYSRON H [Suspect]
     Indication: BREAST CANCER
     Route: 048
     Dates: start: 20050511, end: 20050914

REACTIONS (1)
  - HEPATIC FUNCTION ABNORMAL [None]
